FAERS Safety Report 4712785-5 (Version None)
Quarter: 2005Q3

REPORT INFORMATION
  Report Type: 
  Country: None (occurrence: None)
  Receive Date: 20050712
  Receipt Date: 20050712
  Transmission Date: 20060218
  Serious: Yes (Death)
  Sender: FDA-Public Use
  Company Number: None

PATIENT
  Sex: Female
  Weight: 74 kg

DRUGS (5)
  1. DUANORUBICIN [Suspect]
     Indication: ACUTE MYELOID LEUKAEMIA
     Dosage: 90 MG/M2/DAY IV
     Dates: start: 20050313
  2. CYTARABINE [Suspect]
     Dosage: 100MG/M2/DAY IV 1-7
     Route: 042
  3. GEMTUZUMAB [Suspect]
  4. OZOGAMICIN [Concomitant]
  5. STEM CELL TRANSPLANTATION [Suspect]

REACTIONS (15)
  - BLOOD PRESSURE DECREASED [None]
  - CATHETER SITE ERYTHEMA [None]
  - CATHETER SITE PAIN [None]
  - CATHETER SITE RELATED REACTION [None]
  - DEPRESSED LEVEL OF CONSCIOUSNESS [None]
  - DYSPNOEA [None]
  - ECCHYMOSIS [None]
  - HAEMATEMESIS [None]
  - HAEMOPTYSIS [None]
  - HEART RATE INCREASED [None]
  - OXYGEN SATURATION DECREASED [None]
  - PLATELET COUNT DECREASED [None]
  - PYREXIA [None]
  - RESPIRATORY RATE INCREASED [None]
  - TREATMENT NONCOMPLIANCE [None]
